FAERS Safety Report 19453627 (Version 3)
Quarter: 2021Q3

REPORT INFORMATION
  Report Type: Spontaneous
  Country: EG (occurrence: EG)
  Receive Date: 20210623
  Receipt Date: 20210816
  Transmission Date: 20211014
  Serious: Yes (Death, Hospitalization, Other)
  Sender: FDA-Public Use
  Company Number: EG-SA-2021SA207438

PATIENT
  Age: 13 Month
  Sex: Male
  Weight: 6 kg

DRUGS (1)
  1. MYOZYME [Suspect]
     Active Substance: ALGLUCOSIDASE ALFA
     Indication: GLYCOGEN STORAGE DISEASE TYPE II
     Dosage: 20 MG/KG, QOW
     Route: 041
     Dates: start: 20201014, end: 20210422

REACTIONS (7)
  - Pneumonia [Fatal]
  - Dyspnoea [Fatal]
  - Feeding disorder [Fatal]
  - Respiratory distress [Fatal]
  - Chest discomfort [Fatal]
  - Respiratory failure [Fatal]
  - Pyrexia [Fatal]

NARRATIVE: CASE EVENT DATE: 202105
